FAERS Safety Report 7931675-8 (Version None)
Quarter: 2011Q4

REPORT INFORMATION
  Report Type: 
  Country: None (occurrence: None)
  Receive Date: 20111121
  Receipt Date: 20111111
  Transmission Date: 20120403
  Serious: Yes (Hospitalization, Other)
  Sender: FDA-Public Use
  Company Number: PHHY2011DE80161

PATIENT
  Sex: Male
  Weight: 74 kg

DRUGS (14)
  1. LACTULOSE [Concomitant]
     Dosage: 10 ML,
     Route: 048
  2. LEVOTHYROXINE SODIUM [Concomitant]
     Indication: HYPOTHYROIDISM
     Dosage: 50
     Route: 048
     Dates: start: 20090101
  3. PANTOPRAZOLE SODIUM [Concomitant]
     Dosage: 20 MG,
     Route: 048
  4. MADOPAR [Suspect]
     Indication: PARKINSON'S DISEASE
     Dosage: 5 TABLETS PER DAY
     Route: 048
     Dates: start: 20090101
  5. TARGIN [Suspect]
     Indication: PAIN
     Dosage: 10 MG,
     Route: 048
  6. CYMBALTA [Concomitant]
     Dosage: 60 MG,
     Route: 048
     Dates: start: 20110201
  7. AFINITOR [Suspect]
     Indication: RENAL CELL CARCINOMA
     Dosage: 10 MG, DAY
     Route: 048
     Dates: start: 20110713, end: 20110823
  8. AXURA [Concomitant]
     Indication: DEMENTIA
     Route: 048
  9. ZOPICLON [Concomitant]
     Dosage: 7.5 MG, ONCE AT NIGHT
     Route: 048
  10. TARGIN [Suspect]
     Dosage: 5 MG, BID
     Route: 048
  11. RAMIPRIL [Concomitant]
     Indication: HYPERTENSION
     Dosage: 5 MG, UNK
     Route: 048
     Dates: start: 20110701
  12. DULOXETIME HYDROCHLORIDE [Concomitant]
     Dosage: 60 MG, PER DAY
     Route: 048
  13. CLOZAPINE [Concomitant]
     Dosage: 12.5 MG, PER DAY
     Route: 048
  14. NOVAMINSULFON [Concomitant]
     Indication: PAIN
     Dosage: 500 MG
     Route: 048

REACTIONS (6)
  - MALIGNANT PLEURAL EFFUSION [None]
  - BEHAVIOURAL AND PSYCHIATRIC SYMPTOMS OF DEMENTIA [None]
  - NEOPLASM MALIGNANT [None]
  - PLEURAL EFFUSION [None]
  - NEOPLASM PROGRESSION [None]
  - MALIGNANT NEOPLASM OF PLEURA [None]
